FAERS Safety Report 14286618 (Version 2)
Quarter: 2018Q4

REPORT INFORMATION
  Report Type: Spontaneous
  Country: US (occurrence: US)
  Receive Date: 20171214
  Receipt Date: 20181012
  Transmission Date: 20190204
  Serious: Yes (Hospitalization)
  Sender: FDA-Public Use
  Company Number: US-ALLERGAN-1763793US

PATIENT
  Age: 24 Year
  Sex: Female

DRUGS (1)
  1. OXYTROL FOR WOMEN [Suspect]
     Active Substance: OXYBUTYNIN
     Indication: HYPERTONIC BLADDER
     Dosage: 2 DF, Q WEEK
     Route: 062
     Dates: start: 201710, end: 201710

REACTIONS (3)
  - Product adhesion issue [Unknown]
  - Vasculitis [Recovered/Resolved]
  - Skin reaction [Unknown]
